FAERS Safety Report 15209477 (Version 1)
Quarter: 2018Q3

REPORT INFORMATION
  Report Type: Spontaneous
  Country: US (occurrence: US)
  Receive Date: 20180727
  Receipt Date: 20180727
  Transmission Date: 20181010
  Serious: Yes (Disabling)
  Sender: FDA-Public Use
  Company Number: US-ANIPHARMA-2018-US-012548

PATIENT
  Age: 64 Year
  Sex: Female
  Weight: 57.15 kg

DRUGS (7)
  1. CRESTOR [Suspect]
     Active Substance: ROSUVASTATIN CALCIUM
     Dosage: 10 MG/ HS
     Route: 048
  2. BLUE EMU [Concomitant]
  3. TYLENOL [Concomitant]
     Active Substance: ACETAMINOPHEN
  4. ANASTROZOLE. [Suspect]
     Active Substance: ANASTROZOLE
     Indication: BREAST CANCER
     Dosage: 1 MG/ DAILY
     Route: 048
  5. ROSUVASTATIN. [Suspect]
     Active Substance: ROSUVASTATIN
     Dosage: 10 MG/ HS
     Route: 048
  6. IBUPROFEN. [Concomitant]
     Active Substance: IBUPROFEN
  7. PENETREX [Concomitant]
     Active Substance: ENOXACIN

REACTIONS (4)
  - Arthropathy [Unknown]
  - Osteoporosis [Unknown]
  - Pain [Unknown]
  - Decreased activity [Unknown]
